FAERS Safety Report 7916914-1 (Version None)
Quarter: 2011Q4

REPORT INFORMATION
  Report Type: 
  Country: None (occurrence: None)
  Receive Date: 20111116
  Receipt Date: 20111107
  Transmission Date: 20120403
  Serious: No
  Sender: FDA-Public Use
  Company Number: US-JNJFOC-20111103519

PATIENT
  Sex: Female

DRUGS (9)
  1. ASPIRIN [Concomitant]
     Indication: PROPHYLAXIS
     Route: 065
  2. PEPCID [Concomitant]
     Route: 065
  3. HYDROCODEIN [Concomitant]
     Indication: BREAKTHROUGH PAIN
     Route: 065
  4. TOPROL-XL [Concomitant]
     Indication: HYPERTENSION
     Route: 065
  5. FENTANYL-100 [Suspect]
     Indication: SPINAL FRACTURE
     Route: 065
     Dates: start: 20110101
  6. FENTANYL-100 [Suspect]
     Indication: HIP SURGERY
     Route: 065
     Dates: start: 20110101
  7. VITAMIN TAB [Concomitant]
     Indication: NUTRITIONAL SUPPORT
     Route: 065
  8. LIPITOR [Concomitant]
     Indication: BLOOD CHOLESTEROL
     Route: 065
  9. XANAX [Concomitant]
     Route: 065

REACTIONS (1)
  - WRONG TECHNIQUE IN DRUG USAGE PROCESS [None]
